FAERS Safety Report 9705707 (Version 1)
Quarter: 2013Q4

REPORT INFORMATION
  Report Type: Spontaneous
  Country: US (occurrence: US)
  Receive Date: 20131122
  Receipt Date: 20131122
  Transmission Date: 20140711
  Serious: No
  Sender: FDA-Public Use
  Company Number: US-GILEAD-2008-0017727

PATIENT
  Sex: Female
  Weight: 64.41 kg

DRUGS (16)
  1. LETAIRIS [Suspect]
     Indication: PULMONARY ARTERIAL HYPERTENSION
     Route: 048
  2. HEPARIN [Concomitant]
     Route: 042
  3. SODIUM CHLORIDE [Concomitant]
     Route: 042
  4. FLOLAN [Concomitant]
     Route: 042
  5. LASIX [Concomitant]
     Route: 048
  6. ZYRTEC [Concomitant]
     Route: 048
  7. PRILOSEC [Concomitant]
     Route: 048
  8. LYRICA [Concomitant]
     Route: 048
  9. LORAZEPAM [Concomitant]
     Route: 048
  10. OXYGEN [Concomitant]
     Route: 055
  11. K-DUR [Concomitant]
     Route: 048
  12. HYDROCODONE/APAP [Concomitant]
     Route: 048
  13. ALBUTEROL [Concomitant]
     Route: 055
  14. ADVAIR [Concomitant]
     Route: 048
  15. SPIRONOLACTONE [Concomitant]
     Route: 048
  16. MULTIVITAMIN [Concomitant]
     Route: 048

REACTIONS (5)
  - Face oedema [None]
  - Localised oedema [None]
  - Dyspnoea [None]
  - Flushing [None]
  - Oedema peripheral [None]
